FAERS Safety Report 4932020-2 (Version None)
Quarter: 2006Q1

REPORT INFORMATION
  Report Type: 
  Country: None (occurrence: None)
  Receive Date: 20060303
  Receipt Date: 20051209
  Transmission Date: 20060701
  Serious: Yes (Other)
  Sender: FDA-Public Use
  Company Number: 001#1#2005-00336

PATIENT
  Age: 45 Year
  Sex: Female

DRUGS (1)
  1. NARAMIG [Suspect]
     Dosage: 2.5MG UNKNOWN
     Route: 048

REACTIONS (2)
  - NECROSIS [None]
  - TENDON DISORDER [None]
